FAERS Safety Report 10695234 (Version 1)
Quarter: 2014Q4

REPORT INFORMATION
  Report Type: Spontaneous
  Country: US (occurrence: None)
  Receive Date: 20141223
  Receipt Date: 20141223
  Transmission Date: 20150529
  Serious: No
  Sender: FDA-Public Use
  Company Number: 1000072232

PATIENT
  Age: 70 Year
  Sex: Male

DRUGS (2)
  1. PERCOCET (ACETAMINOPHEN, OXYCODONE) (ACETAMINOPHEN, OXYCODONE) [Concomitant]
  2. LINZESS [Suspect]
     Active Substance: LINACLOTIDE
     Indication: CONSTIPATION
     Dosage: 290 MCG, 1 IN 1 D
     Route: 048
     Dates: start: 20141107

REACTIONS (2)
  - Off label use [None]
  - Diarrhoea [None]

NARRATIVE: CASE EVENT DATE: 20141107
